FAERS Safety Report 4877256-4 (Version None)
Quarter: 2006Q1

REPORT INFORMATION
  Report Type: 
  Country: None (occurrence: None)
  Receive Date: 20060109
  Receipt Date: 20060109
  Transmission Date: 20060701
  Serious: Yes (Death)
  Sender: FDA-Public Use
  Company Number: None

PATIENT
  Age: 74 Year
  Sex: Female
  Weight: 72.5755 kg

DRUGS (4)
  1. TEMODAR [Suspect]
     Indication: GLIOBLASTOMA MULTIFORME
     Dosage: TAKE 2 CAPSULES DAY 1-17 ; TAKE 1 CAPSULES DAYS 18-42
     Dates: start: 20051107, end: 20051212
  2. TARCEVA [Suspect]
     Indication: GLIOBLASTOMA MULTIFORME
     Dosage: TAKE 1 TABLET DAILY
     Dates: start: 20051107, end: 20051226
  3. RADIATION THERAPY [Concomitant]
  4. SYNTHROID [Concomitant]

REACTIONS (8)
  - BLOOD CULTURE POSITIVE [None]
  - BLOOD PRESSURE DECREASED [None]
  - FEBRILE NEUTROPENIA [None]
  - HAEMATOCRIT DECREASED [None]
  - HAEMOGLOBIN DECREASED [None]
  - MULTI-ORGAN FAILURE [None]
  - PLATELET COUNT DECREASED [None]
  - PSEUDOMONAS INFECTION [None]
